FAERS Safety Report 8987792 (Version 2)
Quarter: 2013Q1

REPORT INFORMATION
  Report Type: Spontaneous
  Country: TR (occurrence: TR)
  Receive Date: 20121227
  Receipt Date: 20130104
  Transmission Date: 20140127
  Serious: Yes (Other)
  Sender: FDA-Public Use
  Company Number: TR-TEVA-376965ISR

PATIENT
  Age: 2 Year
  Sex: Male
  Weight: 12.7 kg

DRUGS (5)
  1. ETOPOSIDE [Suspect]
     Indication: ACUTE MYELOID LEUKAEMIA
     Dosage: 125 MG/M2 DAILY; 125 MG/M2
     Route: 065
  2. CYTARABINE [Suspect]
     Indication: ACUTE MYELOID LEUKAEMIA
     Dosage: 3 G/M2
     Route: 042
  3. CYTARABINE [Suspect]
     Indication: ACUTE MYELOID LEUKAEMIA
     Dosage: 26 MILLIGRAM DAILY; 26MG
     Route: 037
  4. CEFEPIME [Suspect]
     Indication: FEBRILE NEUTROPENIA
     Dosage: 150 MG/KG DAILY; 150 MG/KG/DAY
     Route: 042
  5. AMIKACIN [Concomitant]
     Indication: FEBRILE NEUTROPENIA
     Dosage: 15 MG/KG DAILY; 15 MG/KG/DAY
     Route: 065

REACTIONS (1)
  - Status epilepticus [Recovered/Resolved]
